FAERS Safety Report 5836456-7 (Version None)
Quarter: 2008Q3

REPORT INFORMATION
  Report Type: 
  Country: None (occurrence: None)
  Receive Date: 20080807
  Receipt Date: 20080730
  Transmission Date: 20090109
  Serious: Yes (Other)
  Sender: FDA-Public Use
  Company Number: PHHY2008BR16563

PATIENT
  Sex: Female
  Weight: 70 kg

DRUGS (1)
  1. METHERGINE [Suspect]
     Indication: UTERINE LEIOMYOMA
     Dosage: 0.125 MG, TID
     Route: 048

REACTIONS (4)
  - CARDIOVASCULAR DISORDER [None]
  - CHOLECYSTECTOMY [None]
  - CHOLELITHOTOMY [None]
  - POST PROCEDURAL COMPLICATION [None]
